FAERS Safety Report 15192607 (Version 1)
Quarter: 2018Q3

REPORT INFORMATION
  Report Type: Spontaneous
  Country: US (occurrence: US)
  Receive Date: 20180725
  Receipt Date: 20180725
  Transmission Date: 20181010
  Serious: No
  Sender: FDA-Public Use
  Company Number: US-B.I. PHARMACEUTICALS,INC./RIDGEFIELD-2018-BI-038016

PATIENT
  Sex: Female

DRUGS (2)
  1. ADVIL [Concomitant]
     Active Substance: IBUPROFEN
     Indication: PAIN
     Dosage: FORMULATION: TABLET;
     Route: 065
  2. MOBIC [Suspect]
     Active Substance: MELOXICAM
     Indication: PERIARTHRITIS
     Dosage: FORM STRENGTH: 15 MG; ) ?ACTION(S) TAKEN WITH PRODUCT: DOSE NOT CHANGED
     Route: 065
     Dates: start: 2018

REACTIONS (2)
  - Drug effect incomplete [Unknown]
  - Off label use [Unknown]

NARRATIVE: CASE EVENT DATE: 2018
